FAERS Safety Report 19260235 (Version 1)
Quarter: 2021Q2

REPORT INFORMATION
  Report Type: Spontaneous
  Country: CN (occurrence: CN)
  Receive Date: 20210514
  Receipt Date: 20210514
  Transmission Date: 20210717
  Serious: Yes (Hospitalization, Other)
  Sender: FDA-Public Use
  Company Number: CN-TAKEDA-2021TUS028755

PATIENT
  Age: 42 Year
  Sex: Male

DRUGS (1)
  1. FOSRENOL [Suspect]
     Active Substance: LANTHANUM CARBONATE
     Indication: RENAL FAILURE
     Dosage: 500 MILLIGRAM
     Route: 048
     Dates: start: 20210406, end: 20210414

REACTIONS (16)
  - Vomiting [Recovering/Resolving]
  - Abdominal distension [Recovering/Resolving]
  - Chronic kidney disease [Recovering/Resolving]
  - Emphysema [Recovering/Resolving]
  - Blood pressure increased [Recovering/Resolving]
  - Pleural effusion [Recovering/Resolving]
  - Arteriosclerosis coronary artery [Recovering/Resolving]
  - Haemodialysis [Recovering/Resolving]
  - Volvulus [Recovering/Resolving]
  - Hospitalisation [Recovering/Resolving]
  - Nausea [Recovering/Resolving]
  - Intestinal fistula [Recovering/Resolving]
  - Hypertensive heart disease [Recovering/Resolving]
  - Cardiac failure [Recovering/Resolving]
  - Pelvic fluid collection [Recovering/Resolving]
  - Anaemia [Recovering/Resolving]

NARRATIVE: CASE EVENT DATE: 20210406
